FAERS Safety Report 24957372 (Version 1)
Quarter: 2025Q1

REPORT INFORMATION
  Report Type: Spontaneous
  Country: AE (occurrence: AE)
  Receive Date: 20250211
  Receipt Date: 20250211
  Transmission Date: 20250408
  Serious: Yes (Hospitalization)
  Sender: NOVITIUM PHARMA
  Company Number: AE-NOVITIUMPHARMA-2025AENVP00323

PATIENT
  Age: 17 Year
  Sex: Female

DRUGS (7)
  1. HYDROXYCHLOROQUINE SULFATE [Suspect]
     Active Substance: HYDROXYCHLOROQUINE SULFATE
     Indication: Lupus nephritis
     Dates: start: 2022
  2. TACROLIMUS [Concomitant]
     Active Substance: TACROLIMUS
     Indication: Lupus nephritis
     Dates: start: 2022
  3. MYCOPHENOLATE MOFETIL [Concomitant]
     Active Substance: MYCOPHENOLATE MOFETIL
     Indication: Lupus nephritis
     Dates: start: 2022
  4. PREDNISOLONE [Concomitant]
     Active Substance: PREDNISOLONE
     Indication: Lupus nephritis
     Dates: start: 2022
  5. TELMISARTAN [Concomitant]
     Active Substance: TELMISARTAN
     Indication: Product used for unknown indication
     Dates: start: 2022
  6. AMLODIPINE [Concomitant]
     Active Substance: AMLODIPINE BESYLATE
     Indication: Product used for unknown indication
     Dates: start: 2022
  7. RITUXIMAB [Concomitant]
     Active Substance: RITUXIMAB
     Indication: Lupus nephritis
     Dates: start: 2022

REACTIONS (1)
  - Treatment noncompliance [Unknown]
